FAERS Safety Report 21951034 (Version 3)
Quarter: 2023Q1

REPORT INFORMATION
  Report Type: Report from Study
  Country: US (occurrence: US)
  Receive Date: 20230203
  Receipt Date: 20230310
  Transmission Date: 20230417
  Serious: No
  Sender: FDA-Public Use
  Company Number: US-002147023-NVSC2023US020288

PATIENT
  Sex: Male

DRUGS (1)
  1. ENTRESTO [Suspect]
     Active Substance: SACUBITRIL\VALSARTAN
     Indication: Product used for unknown indication
     Dosage: 1 DOSAGE FORM, BID, (24/26 MG)
     Route: 048
     Dates: start: 20221202

REACTIONS (6)
  - Productive cough [Not Recovered/Not Resolved]
  - Peripheral coldness [Unknown]
  - Feeling cold [Unknown]
  - Concomitant disease aggravated [Unknown]
  - Pruritus [Unknown]
  - Hypersensitivity [Unknown]
